FAERS Safety Report 19554701 (Version 1)
Quarter: 2021Q3

REPORT INFORMATION
  Report Type: Report from Study
  Country: US (occurrence: US)
  Receive Date: 20210715
  Receipt Date: 20210715
  Transmission Date: 20211014
  Serious: Yes (Hospitalization, Other)
  Sender: FDA-Public Use
  Company Number: US-GLAXOSMITHKLINE-US2021GSK150582

PATIENT
  Age: 19 Year
  Sex: Female

DRUGS (1)
  1. SUMATRIPTAN SUCCINATE. [Suspect]
     Active Substance: SUMATRIPTAN SUCCINATE
     Indication: PRODUCT USED FOR UNKNOWN INDICATION
     Dosage: UNK
     Route: 048

REACTIONS (8)
  - Suicide attempt [Recovered/Resolved]
  - Clonus [Recovered/Resolved]
  - Serotonin syndrome [Recovered/Resolved]
  - Mental status changes [Recovered/Resolved]
  - Mydriasis [Recovered/Resolved]
  - Tachycardia [Recovered/Resolved]
  - Hypertension [Recovered/Resolved]
  - Intentional overdose [Recovered/Resolved]
